FAERS Safety Report 6177865-9 (Version None)
Quarter: 2009Q2

REPORT INFORMATION
  Report Type: 
  Country: None (occurrence: None)
  Receive Date: 20090501
  Receipt Date: 20090501
  Transmission Date: 20091009
  Serious: Yes (Hospitalization)
  Sender: FDA-Public Use
  Company Number: None

PATIENT
  Age: 80 Year
  Sex: Male

DRUGS (3)
  1. WARFARIN SODIUM [Suspect]
     Indication: ATRIAL FIBRILLATION
     Dosage: 2 MG EVERY DAY PO
     Route: 048
     Dates: start: 20080711
  2. WARFARIN SODIUM [Suspect]
     Indication: CORONARY ARTERIAL STENT INSERTION
     Dosage: 2 MG EVERY DAY PO
     Route: 048
     Dates: start: 20080711
  3. ENOXAPARIN SODIUM [Suspect]
     Dates: start: 20090215, end: 20090302

REACTIONS (5)
  - ATRIAL FIBRILLATION [None]
  - GASTRIC HAEMORRHAGE [None]
  - HAEMATURIA [None]
  - HIP FRACTURE [None]
  - RECTAL HAEMORRHAGE [None]
